FAERS Safety Report 12267252 (Version 1)
Quarter: 2016Q2

REPORT INFORMATION
  Report Type: Spontaneous
  Country: US (occurrence: None)
  Receive Date: 20160413
  Receipt Date: 20160413
  Transmission Date: 20160815
  Serious: No
  Sender: FDA-Public Use
  Company Number: None

PATIENT
  Age: 85 Year
  Sex: Female

DRUGS (25)
  1. ASPIRIN. [Concomitant]
     Active Substance: ASPIRIN
  2. CARBIDOPA. [Concomitant]
     Active Substance: CARBIDOPA
  3. EXEMESTANE. [Concomitant]
     Active Substance: EXEMESTANE
  4. FISH OIL [Concomitant]
     Active Substance: FISH OIL
  5. PANTOPRAZOLE [Concomitant]
     Active Substance: PANTOPRAZOLE SODIUM
  6. PRESERVISION [Concomitant]
     Active Substance: MINERALS\VITAMINS
  7. DOCUSATE SOD [Concomitant]
  8. METOPROLOL. [Concomitant]
     Active Substance: METOPROLOL
  9. OYSTER SHELL [Concomitant]
     Active Substance: OSTREA EDULIS SHELL
  10. VALSARTAN. [Concomitant]
     Active Substance: VALSARTAN
  11. FERROUS SULF [Concomitant]
  12. GABAPENTIN. [Concomitant]
     Active Substance: GABAPENTIN
  13. GLIMEPIRIDE. [Concomitant]
     Active Substance: GLIMEPIRIDE
  14. TRAMADOL HCL [Concomitant]
     Active Substance: TRAMADOL HYDROCHLORIDE
  15. OXYCODONE AND ACETAMINOPHEN [Concomitant]
     Active Substance: ACETAMINOPHEN\OXYCODONE HYDROCHLORIDE
  16. BIOTIN [Concomitant]
     Active Substance: BIOTIN
  17. VITAMIN C [Concomitant]
     Active Substance: ASCORBIC ACID
  18. AFINITOR [Suspect]
     Active Substance: EVEROLIMUS
     Indication: NEOPLASM MALIGNANT
     Route: 048
     Dates: start: 20160315
  19. DULOXETINE. [Concomitant]
     Active Substance: DULOXETINE
  20. METFORMIN [Concomitant]
     Active Substance: METFORMIN HYDROCHLORIDE
  21. ZETIA [Concomitant]
     Active Substance: EZETIMIBE
  22. JANUVIA [Concomitant]
     Active Substance: SITAGLIPTIN PHOSPHATE
  23. LEVOTHYROXIN [Concomitant]
     Active Substance: LEVOTHYROXINE
  24. MELATONIN [Concomitant]
     Active Substance: MELATONIN
  25. XGEVA [Concomitant]
     Active Substance: DENOSUMAB

REACTIONS (2)
  - Feeling cold [None]
  - Nausea [None]

NARRATIVE: CASE EVENT DATE: 20160410
